FAERS Safety Report 13050781 (Version 1)
Quarter: 2016Q4

REPORT INFORMATION
  Report Type: Spontaneous
  Country: US (occurrence: US)
  Receive Date: 20161221
  Receipt Date: 20161221
  Transmission Date: 20170207
  Serious: Yes (Hospitalization)
  Sender: FDA-Public Use
  Company Number: US-ENDO PHARMACEUTICALS INC.-2016-005306

PATIENT
  Age: 58 Year
  Sex: Female
  Weight: 72.64 kg

DRUGS (2)
  1. OPANA ER [Suspect]
     Active Substance: OXYMORPHONE HYDROCHLORIDE
     Indication: NERVE INJURY
  2. OPANA ER [Suspect]
     Active Substance: OXYMORPHONE HYDROCHLORIDE
     Indication: SCIATICA
     Route: 048

REACTIONS (9)
  - Cardiac disorder [Unknown]
  - Anxiety [Unknown]
  - Abasia [Unknown]
  - Depression [Unknown]
  - Feeling abnormal [Unknown]
  - Electrolyte imbalance [Unknown]
  - Amnesia [Unknown]
  - Drug withdrawal syndrome [Recovered/Resolved]
  - Drug dose omission [Recovered/Resolved]

NARRATIVE: CASE EVENT DATE: 20150810
